FAERS Safety Report 18810944 (Version 4)
Quarter: 2022Q1

REPORT INFORMATION
  Report Type: Report from Study
  Country: PE (occurrence: None)
  Receive Date: 20210129
  Receipt Date: 20220202
  Transmission Date: 20220424
  Serious: Yes (Hospitalization)
  Sender: FDA-Public Use
  Company Number: 2019SF76453

PATIENT
  Age: 19643 Day
  Sex: Female

DRUGS (20)
  1. DURVALUMAB [Suspect]
     Active Substance: DURVALUMAB
     Indication: Cervix carcinoma
     Route: 042
     Dates: start: 20190916, end: 20190916
  2. DURVALUMAB [Suspect]
     Active Substance: DURVALUMAB
     Indication: Cervix carcinoma
     Route: 042
     Dates: start: 20191016, end: 20191016
  3. DURVALUMAB [Suspect]
     Active Substance: DURVALUMAB
     Indication: Cervix carcinoma
     Route: 042
     Dates: start: 20191113, end: 20191113
  4. DURVALUMAB [Suspect]
     Active Substance: DURVALUMAB
     Indication: Cervix carcinoma
     Route: 042
     Dates: start: 20191211, end: 20191211
  5. DURVALUMAB [Suspect]
     Active Substance: DURVALUMAB
     Indication: Cervix carcinoma
     Route: 042
     Dates: start: 20200106, end: 20200106
  6. DURVALUMAB [Suspect]
     Active Substance: DURVALUMAB
     Indication: Cervix carcinoma
     Route: 042
     Dates: start: 20200203, end: 20200203
  7. DURVALUMAB [Suspect]
     Active Substance: DURVALUMAB
     Indication: Cervix carcinoma
     Route: 042
     Dates: start: 20200302, end: 20200302
  8. CARBOPLATIN [Suspect]
     Active Substance: CARBOPLATIN
     Indication: Cervix carcinoma
     Dosage: AUC 2 ONCE A WEEK
     Route: 042
     Dates: start: 20190916, end: 20190916
  9. CARBOPLATIN [Suspect]
     Active Substance: CARBOPLATIN
     Indication: Cervix carcinoma
     Dosage: AUC 2 ONCE A WEEK
     Route: 042
     Dates: start: 20190923, end: 20190923
  10. CARBOPLATIN [Suspect]
     Active Substance: CARBOPLATIN
     Indication: Cervix carcinoma
     Dosage: AUC 2 ONCE A WEEK
     Route: 042
     Dates: start: 20190930, end: 20190930
  11. CARBOPLATIN [Suspect]
     Active Substance: CARBOPLATIN
     Indication: Cervix carcinoma
     Dosage: AUC 2 ONCE A WEEK
     Route: 042
     Dates: start: 20191007, end: 20191007
  12. CARBOPLATIN [Suspect]
     Active Substance: CARBOPLATIN
     Indication: Cervix carcinoma
     Dosage: AUC 2 ONCE A WEEK
     Route: 042
     Dates: start: 20191016, end: 20191016
  13. METFORMIN [Concomitant]
     Active Substance: METFORMIN HYDROCHLORIDE
     Indication: Diabetes mellitus
     Dosage: 850.0 MG OTHER
     Route: 048
     Dates: start: 2018
  14. LOSARTAN [Concomitant]
     Active Substance: LOSARTAN
     Indication: Hypertension
     Dosage: 50.0 MG OTHER
     Route: 048
     Dates: start: 1996
  15. DEXAMETHASONE [Concomitant]
     Active Substance: DEXAMETHASONE
     Indication: Chemotherapy
     Route: 042
     Dates: start: 20191031, end: 20191106
  16. DEXAMETHASONE [Concomitant]
     Active Substance: DEXAMETHASONE
     Indication: Vomiting
     Route: 042
     Dates: start: 20191031, end: 20191106
  17. BETAMETHASONE [Concomitant]
     Active Substance: BETAMETHASONE
     Indication: Skin abrasion
     Dosage: 1.0 OTHER THREE TIMES A DAY
     Route: 061
     Dates: start: 20190930
  18. SIAGLIPTINE [Concomitant]
     Indication: Diabetes mellitus
     Route: 048
     Dates: start: 20191022
  19. DIMENHIDRINATE [Concomitant]
     Indication: Vomiting
     Dosage: 50.0MG AS REQUIRED
     Route: 042
     Dates: start: 20191031, end: 20191106
  20. PREGABALIN [Concomitant]
     Active Substance: PREGABALIN
     Indication: Neuralgia
     Dosage: 50 MG BID
     Dates: start: 20200723

REACTIONS (1)
  - Exfoliative rash [Recovered/Resolved]

NARRATIVE: CASE EVENT DATE: 20191122
